FAERS Safety Report 16285795 (Version 1)
Quarter: 2019Q2

REPORT INFORMATION
  Report Type: Spontaneous
  Country: SE (occurrence: SE)
  Receive Date: 20190508
  Receipt Date: 20190508
  Transmission Date: 20190711
  Serious: Yes (Other)
  Sender: FDA-Public Use
  Company Number: SE-PFIZER INC-2019193276

PATIENT
  Sex: Male

DRUGS (1)
  1. CORDARONE X [Suspect]
     Active Substance: AMIODARONE HYDROCHLORIDE
     Dosage: 200 MG, DAILY (^200 MG DAGLIGEN^)
     Route: 065
     Dates: start: 2016, end: 20190415

REACTIONS (1)
  - Parkinsonism [Unknown]
